FAERS Safety Report 6235022-1 (Version None)
Quarter: 2009Q2

REPORT INFORMATION
  Report Type: 
  Country: None (occurrence: None)
  Receive Date: 20090618
  Receipt Date: 20090608
  Transmission Date: 20091009
  Serious: Yes (Hospitalization)
  Sender: FDA-Public Use
  Company Number: IT-KINGPHARMUSA00001-K200900697

PATIENT
  Age: 73 Year
  Sex: Female

DRUGS (11)
  1. EPIPEN [Suspect]
     Indication: LARYNGEAL OEDEMA
     Dosage: UNK
     Dates: start: 20070905, end: 20070905
  2. EPIPEN [Suspect]
     Indication: COLD SWEAT
  3. EPIPEN [Suspect]
     Indication: TONGUE OEDEMA
  4. FLAVOXATE HYDROCHLORIDE COATED TAB [Suspect]
     Dosage: UNK, SINGLE
  5. PROPYPHENAZONE [Suspect]
     Dosage: UNK, SINGLE
  6. HYDROCORTISONE [Concomitant]
     Indication: LARYNGEAL OEDEMA
  7. HYDROCORTISONE [Concomitant]
     Indication: COLD SWEAT
  8. HYDROCORTISONE [Concomitant]
     Indication: TONGUE OEDEMA
  9. BETAMETHASONE [Concomitant]
     Indication: LARYNGEAL OEDEMA
  10. BETAMETHASONE [Concomitant]
     Indication: COLD SWEAT
  11. BETAMETHASONE [Concomitant]
     Indication: TONGUE OEDEMA

REACTIONS (4)
  - ACUTE CORONARY SYNDROME [None]
  - ACUTE MYOCARDIAL INFARCTION [None]
  - ELECTROCARDIOGRAM ABNORMAL [None]
  - KOUNIS SYNDROME [None]
